FAERS Safety Report 14869042 (Version 4)
Quarter: 2022Q2

REPORT INFORMATION
  Report Type: Spontaneous
  Country: US (occurrence: US)
  Receive Date: 20180509
  Receipt Date: 20220503
  Transmission Date: 20220721
  Serious: No
  Sender: FDA-Public Use
  Company Number: US-PFIZER INC-2017538278

PATIENT
  Age: 45 Year
  Sex: Female

DRUGS (6)
  1. DOCETAXEL [Suspect]
     Active Substance: DOCETAXEL
     Indication: Triple positive breast cancer
     Dosage: UNK, (06 CYCLES, EVERY 3 WEEKS)
     Dates: start: 20120618, end: 20121001
  2. DOCETAXEL [Suspect]
     Active Substance: DOCETAXEL
     Indication: Triple positive breast cancer
     Dosage: UNK, (06 CYCLES, EVERY 3 WEEKS)
     Dates: start: 20120618, end: 20121001
  3. DOCETAXEL [Suspect]
     Active Substance: DOCETAXEL
     Indication: Triple positive breast cancer
     Dosage: UNK, (06 CYCLES, EVERY 3 WEEKS)
     Dates: start: 20120618, end: 20121001
  4. TAXOTERE [Concomitant]
     Active Substance: DOCETAXEL
     Indication: Chemotherapy
     Dosage: UNK
  5. PARAPLATIN [Concomitant]
     Active Substance: CARBOPLATIN
     Indication: Chemotherapy
     Dosage: UNK
  6. HERCEPTIN [Concomitant]
     Active Substance: TRASTUZUMAB
     Indication: Chemotherapy
     Dosage: UNK

REACTIONS (5)
  - Alopecia [Not Recovered/Not Resolved]
  - Hair texture abnormal [Not Recovered/Not Resolved]
  - Hair disorder [Not Recovered/Not Resolved]
  - Hair colour changes [Not Recovered/Not Resolved]
  - Madarosis [Not Recovered/Not Resolved]

NARRATIVE: CASE EVENT DATE: 20130401
